FAERS Safety Report 4475122-X (Version None)
Quarter: 2004Q4

REPORT INFORMATION
  Report Type: 
  Country: None (occurrence: None)
  Receive Date: 20041013
  Receipt Date: 20041013
  Transmission Date: 20050328
  Serious: Yes (Death)
  Sender: FDA-Public Use
  Company Number: None

PATIENT
  Age: 66 Year
  Sex: Female
  Weight: 93.8946 kg

DRUGS (7)
  1. DOCETAXEL AVENTIS [Suspect]
     Indication: BREAST CANCER METASTATIC
     Dosage: 35 MG/M2  WEEKLY  INTRAVENOU
     Route: 042
     Dates: start: 20040615, end: 20040817
  2. TRASTUZUMAB [Suspect]
     Indication: BREAST CANCER METASTATIC
     Dosage: 4 MG/KG  BIWEEKLY  INTRAVENOU
     Dates: start: 20040615, end: 20040817
  3. DEXAMETHASONE [Concomitant]
  4. WARFARIN SODIUM [Concomitant]
  5. LASIX [Concomitant]
  6. ZOFRAN [Concomitant]
  7. KYTRIL [Concomitant]

REACTIONS (21)
  - ASTHENIA [None]
  - DECREASED APPETITE [None]
  - DEHYDRATION [None]
  - DRUG HYPERSENSITIVITY [None]
  - DYSGEUSIA [None]
  - DYSPNOEA EXERTIONAL [None]
  - FATIGUE [None]
  - FEELING ABNORMAL [None]
  - FLUID INTAKE REDUCED [None]
  - GENERAL PHYSICAL HEALTH DETERIORATION [None]
  - HALLUCINATION [None]
  - HYPOTENSION [None]
  - HYPOXIA [None]
  - LUNG INFILTRATION [None]
  - MARKEDLY REDUCED DIETARY INTAKE [None]
  - NAUSEA [None]
  - PAIN [None]
  - RASH PRURITIC [None]
  - SEPSIS [None]
  - TACHYCARDIA [None]
  - THERAPY NON-RESPONDER [None]
